FAERS Safety Report 7377577-X (Version None)
Quarter: 2011Q1

REPORT INFORMATION
  Report Type: 
  Country: None (occurrence: None)
  Receive Date: 20110328
  Receipt Date: 20110318
  Transmission Date: 20110831
  Serious: Yes (Other)
  Sender: FDA-Public Use
  Company Number: US-AMGEN-USASP2011015071

PATIENT
  Age: 45 Year
  Sex: Female

DRUGS (1)
  1. ENBREL [Suspect]
     Indication: RHEUMATOID ARTHRITIS
     Dosage: 50 MG, QWK
     Dates: start: 20101001

REACTIONS (6)
  - INJECTION SITE HAEMATOMA [None]
  - ASTHENIA [None]
  - HEADACHE [None]
  - ANGINA PECTORIS [None]
  - VISUAL ACUITY REDUCED [None]
  - INJECTION SITE PAIN [None]
